FAERS Safety Report 20203461 (Version 2)
Quarter: 2022Q1

REPORT INFORMATION
  Report Type: Spontaneous
  Country: US (occurrence: US)
  Receive Date: 20211218
  Receipt Date: 20220110
  Transmission Date: 20220423
  Serious: Yes (Other)
  Sender: FDA-Public Use
  Company Number: US-SERVIER-S21013758

PATIENT

DRUGS (4)
  1. ONCASPAR [Suspect]
     Active Substance: PEGASPARGASE
     Indication: Acute lymphocytic leukaemia
     Dosage: 3750 IU, ONE DOSE
     Route: 042
     Dates: start: 20210930, end: 20210930
  2. TN UNSPECIFIED [Concomitant]
     Indication: Premedication
     Dosage: 650 MG, ONE DOSE
     Route: 048
     Dates: start: 20210930, end: 20210930
  3. TN UNSPECIFIED [Concomitant]
     Indication: Premedication
     Dosage: 25 MG, ONE DOSE
     Route: 048
     Dates: start: 20210930, end: 20210930
  4. TN UNSPECIFIED [Concomitant]
     Indication: Premedication
     Dosage: 100 MG, ONE DOSE
     Route: 042
     Dates: start: 20210930, end: 20210930

REACTIONS (1)
  - Hypersensitivity [Recovered/Resolved]

NARRATIVE: CASE EVENT DATE: 20210930
